FAERS Safety Report 20087374 (Version 1)
Quarter: 2021Q4

REPORT INFORMATION
  Report Type: Report from Study
  Country: US (occurrence: US)
  Receive Date: 20211118
  Receipt Date: 20211118
  Transmission Date: 20220303
  Serious: Yes (Other)
  Sender: FDA-Public Use
  Company Number: US-JNJFOC-20210923663

PATIENT
  Age: 56 Year
  Sex: Female

DRUGS (2)
  1. SPRAVATO [Suspect]
     Active Substance: ESKETAMINE
     Indication: Depression
  2. SPRAVATO [Suspect]
     Active Substance: ESKETAMINE
     Dates: start: 20210913, end: 20210913

REACTIONS (8)
  - Suicidal ideation [Recovered/Resolved]
  - Disturbance in social behaviour [Recovered/Resolved]
  - Conversion disorder [Recovered/Resolved]
  - Screaming [Recovered/Resolved]
  - Anxiety [Recovered/Resolved]
  - Dysphoria [Recovered/Resolved]
  - Sedation [Recovered/Resolved]
  - Dissociation [Recovered/Resolved]

NARRATIVE: CASE EVENT DATE: 20210913
